FAERS Safety Report 15881641 (Version 4)
Quarter: 2019Q2

REPORT INFORMATION
  Report Type: Spontaneous
  Country: GB (occurrence: GB)
  Receive Date: 20190128
  Receipt Date: 20190514
  Transmission Date: 20190711
  Serious: Yes (Death, Other)
  Sender: FDA-Public Use
  Company Number: GB-PFIZER INC-2019034592

PATIENT
  Age: 49 Year
  Sex: Female
  Weight: 97.9 kg

DRUGS (6)
  1. IBRANCE [Suspect]
     Active Substance: PALBOCICLIB
     Indication: PERFORMANCE STATUS DECREASED
     Dosage: 125 MG, CYCLIC
     Dates: start: 201806
  2. DENOSUMAB [Concomitant]
     Active Substance: DENOSUMAB
  3. LETROZOLE. [Concomitant]
     Active Substance: LETROZOLE
  4. IBRANCE [Suspect]
     Active Substance: PALBOCICLIB
     Dosage: 75 MG, DAILY
     Route: 048
     Dates: start: 20180523, end: 201812
  5. IBRANCE [Suspect]
     Active Substance: PALBOCICLIB
     Dosage: 100 MG, CYCLIC
     Dates: end: 20190108
  6. ZOLADEX GYN [Concomitant]

REACTIONS (6)
  - Neutropenia [Recovered/Resolved]
  - Pulmonary fibrosis [Unknown]
  - Lung disorder [Unknown]
  - Pneumococcal sepsis [Unknown]
  - Death [Fatal]
  - Condition aggravated [Unknown]

NARRATIVE: CASE EVENT DATE: 201805
